FAERS Safety Report 10151098 (Version 2)
Quarter: 2014Q3

REPORT INFORMATION
  Report Type: Spontaneous
  Country: DK (occurrence: FR)
  Receive Date: 20140502
  Receipt Date: 20140702
  Transmission Date: 20150326
  Serious: Yes (Life-Threatening, Hospitalization)
  Sender: FDA-Public Use
  Company Number: FR-FRI-1000066975

PATIENT
  Age: 85 Year
  Sex: Female

DRUGS (6)
  1. ESCITALOPRAM [Suspect]
     Active Substance: ESCITALOPRAM OXALATE
     Dosage: 10 MG
     Route: 048
     Dates: start: 201312, end: 20140404
  2. PRITOR [Concomitant]
     Active Substance: TELMISARTAN
  3. PLAVIX [Concomitant]
     Active Substance: CLOPIDOGREL BISULFATE
  4. ARICEPT [Concomitant]
     Active Substance: DONEPEZIL HYDROCHLORIDE
  5. STAGID [Concomitant]
     Active Substance: METFORMIN PAMOATE
  6. XANAX [Suspect]
     Active Substance: ALPRAZOLAM
     Dosage: 0.5 MG
     Route: 048
     Dates: start: 201312, end: 20140404

REACTIONS (5)
  - Cardio-respiratory arrest [Recovered/Resolved]
  - Fall [Recovered/Resolved]
  - Torsade de pointes [Recovered/Resolved]
  - Electrocardiogram QT prolonged [Recovered/Resolved]
  - Ventricular fibrillation [Recovered/Resolved]

NARRATIVE: CASE EVENT DATE: 20140404
